FAERS Safety Report 5779494-5 (Version None)
Quarter: 2008Q2

REPORT INFORMATION
  Report Type: 
  Country: None (occurrence: None)
  Receive Date: 20080619
  Receipt Date: 20080414
  Transmission Date: 20081010
  Serious: No
  Sender: FDA-Public Use
  Company Number: US-ASTRAZENECA-2008UW07577

PATIENT
  Age: 73 Year
  Sex: Male
  Weight: 109.8 kg

DRUGS (2)
  1. ATACAND [Suspect]
     Indication: HYPERTENSION
     Route: 048
  2. MULTI-VITAMIN [Concomitant]

REACTIONS (1)
  - PAIN IN EXTREMITY [None]
